FAERS Safety Report 8448627-4 (Version None)
Quarter: 2012Q2

REPORT INFORMATION
  Report Type: 
  Country: None (occurrence: None)
  Receive Date: 20120619
  Receipt Date: 20120605
  Transmission Date: 20120825
  Serious: Yes (Hospitalization)
  Sender: FDA-Public Use
  Company Number: KR-COVIDIEN/TYCO HEALTHCARE/MALLINCKRODT-T201201936

PATIENT
  Sex: Male
  Weight: 45 kg

DRUGS (13)
  1. CODON [Concomitant]
     Indication: PAIN MANAGEMENT
     Dosage: 10 MG, TID (TABLET)
     Dates: start: 19320204
  2. DUPHALAC [Concomitant]
     Indication: CONSTIPATION
     Dosage: 30 ML, UNK
     Dates: start: 20120509
  3. DUPHALAC [Concomitant]
     Dosage: UNK
  4. EMCAINE [Concomitant]
     Indication: NERVE BLOCK
  5. EXALGO [Suspect]
     Dosage: 8 MG, QD
     Route: 048
     Dates: start: 20120605
  6. LASIX [Concomitant]
     Indication: OEDEMA
     Dosage: UNK
  7. SODIUM BICARBONATE [Concomitant]
     Dosage: UNK
  8. SODIUM BICARBONATE [Concomitant]
     Indication: ACIDOSIS
     Dosage: 20 ML, UNK
     Dates: start: 20120514, end: 20120515
  9. MUTERAN [Concomitant]
     Indication: PRODUCTIVE COUGH
     Dosage: 1200 MG, UNK
     Dates: start: 20120512, end: 20120515
  10. TRIAMCINOLONE [Concomitant]
     Indication: NERVE BLOCK
     Dosage: 40 MG/ML, UNK
     Dates: start: 20120514, end: 20120514
  11. EXALGO [Suspect]
     Indication: PAIN MANAGEMENT
     Dosage: 4 MG, QD
     Route: 048
     Dates: start: 20120509, end: 20120604
  12. AZEPTIN                            /00884001/ [Concomitant]
     Indication: COUGH
     Dosage: 2 MG, UNK
     Dates: start: 20120512, end: 20120515
  13. LASIX [Concomitant]
     Indication: DIURETIC THERAPY
     Dosage: 20 MG, UNK
     Dates: start: 20120514, end: 20120515

REACTIONS (3)
  - METASTATIC PAIN [None]
  - DIZZINESS [None]
  - ASTHENIA [None]
